FAERS Safety Report 7023149-6 (Version None)
Quarter: 2010Q3

REPORT INFORMATION
  Report Type: 
  Country: None (occurrence: None)
  Receive Date: 20100930
  Receipt Date: 20100920
  Transmission Date: 20110219
  Serious: Yes (Other)
  Sender: FDA-Public Use
  Company Number: US-PFIZER INC-2006021039

PATIENT
  Sex: Female
  Weight: 48.073 kg

DRUGS (11)
  1. LIPITOR [Suspect]
     Indication: BLOOD CHOLESTEROL INCREASED
     Dosage: 10 MG, 1X/DAY
     Dates: start: 20020101
  2. MONTELUKAST [Suspect]
     Indication: ASTHMA
     Dosage: 10 MG, UNK
     Route: 048
     Dates: start: 20070101, end: 20100714
  3. LISINOPRIL [Concomitant]
     Indication: HYPERTENSION
     Dosage: 10MG, UNK
     Route: 065
  4. PLENDIL [Concomitant]
     Dosage: UNK
     Route: 065
  5. ADVAIR DISKUS 100/50 [Concomitant]
     Dosage: UNK
     Route: 065
  6. PREVACID [Concomitant]
     Dosage: UNK
     Route: 065
  7. PLAVIX [Concomitant]
     Dosage: 75 MG, UNK
  8. CALCIUM [Concomitant]
     Dosage: UNK
  9. VITAMINS [Concomitant]
     Dosage: UNK
  10. SYMBICORT [Concomitant]
     Indication: ASTHMA
     Dosage: UNK
  11. PROTONIX [Concomitant]
     Dosage: UNK

REACTIONS (8)
  - BLOOD CHOLESTEROL INCREASED [None]
  - BLOOD PRESSURE INCREASED [None]
  - DIARRHOEA [None]
  - LIPIDS ABNORMAL [None]
  - MYALGIA [None]
  - NAUSEA [None]
  - VOMITING [None]
  - WITHDRAWAL SYNDROME [None]
